FAERS Safety Report 11245061 (Version 1)
Quarter: 2015Q3

REPORT INFORMATION
  Report Type: Spontaneous
  Country: US (occurrence: US)
  Receive Date: 20150707
  Receipt Date: 20150707
  Transmission Date: 20151125
  Serious: No
  Sender: FDA-Public Use
  Company Number: US-PFIZER INC-2015224084

PATIENT
  Sex: Male

DRUGS (3)
  1. NEURONTIN [Suspect]
     Active Substance: GABAPENTIN
     Dosage: 1500 MG, UNK
     Dates: start: 201506
  2. NEURONTIN [Suspect]
     Active Substance: GABAPENTIN
     Dosage: 900 MG, UNK
     Dates: start: 201506
  3. NEURONTIN [Suspect]
     Active Substance: GABAPENTIN
     Dosage: 500 MG, DAILY
     Dates: start: 2015, end: 20150702

REACTIONS (2)
  - Pyrexia [Unknown]
  - Feeling abnormal [Unknown]

NARRATIVE: CASE EVENT DATE: 20150702
